FAERS Safety Report 15391569 (Version 1)
Quarter: 2018Q3

REPORT INFORMATION
  Report Type: Spontaneous
  Country: US (occurrence: US)
  Receive Date: 20180917
  Receipt Date: 20180917
  Transmission Date: 20181010
  Serious: No
  Sender: FDA-Public Use
  Company Number: US-CELGENEUS-USA-20180905183

PATIENT
  Sex: Male

DRUGS (1)
  1. OTEZLA [Suspect]
     Active Substance: APREMILAST
     Indication: PSORIATIC ARTHROPATHY
     Dosage: 60 MILLIGRAM
     Route: 048

REACTIONS (7)
  - Feeding disorder [Unknown]
  - Migraine [Unknown]
  - Muscle atrophy [Unknown]
  - Irritability [Unknown]
  - Asthenia [Unknown]
  - Confusional state [Unknown]
  - Weight decreased [Unknown]
